FAERS Safety Report 15922532 (Version 2)
Quarter: 2019Q1

REPORT INFORMATION
  Report Type: Spontaneous
  Country: PT (occurrence: PT)
  Receive Date: 20190206
  Receipt Date: 20190302
  Transmission Date: 20190417
  Serious: Yes (Hospitalization, Other)
  Sender: FDA-Public Use
  Company Number: PT-AUROBINDO-AUR-APL-2018-056136

PATIENT

DRUGS (1)
  1. PARACETAMOL [Suspect]
     Active Substance: ACETAMINOPHEN
     Indication: PAIN
     Dosage: 4 GRAM, DAILY
     Route: 065

REACTIONS (14)
  - Generalised oedema [Recovering/Resolving]
  - Ocular icterus [Recovering/Resolving]
  - Pyrexia [Recovering/Resolving]
  - Hepatomegaly [Recovering/Resolving]
  - Liver disorder [Recovering/Resolving]
  - Dizziness [Recovering/Resolving]
  - Pollakiuria [Recovering/Resolving]
  - Asterixis [Recovering/Resolving]
  - Ascites [Recovering/Resolving]
  - Acute hepatic failure [Recovering/Resolving]
  - Multiple organ dysfunction syndrome [Recovering/Resolving]
  - Biliary colic [Recovering/Resolving]
  - Confusional state [Recovering/Resolving]
  - Jaundice [Recovering/Resolving]
